FAERS Safety Report 8778037 (Version 1)
Quarter: 2012Q4

REPORT INFORMATION
  Report Type: 
  Country: GB (occurrence: GB)
  Receive Date: 20120912
  Receipt Date: 20120912
  Transmission Date: 20130627
  Serious: Yes (Other)
  Sender: FDA-Public Use
  Company Number: GB-VALEANT-2012VX004144

PATIENT
  Age: 50 Year
  Sex: Male

DRUGS (2)
  1. EFUDIX [Suspect]
     Indication: BASAL CELL CARCINOMA
     Route: 061
     Dates: start: 20120805, end: 20120806
  2. THYROXINE [Concomitant]
     Indication: THYROID DISORDER
     Dosage: Dose unit:U UNKNOWN
     Route: 065

REACTIONS (1)
  - Angioedema [Recovered/Resolved]
